FAERS Safety Report 5166070-0 (Version None)
Quarter: 2006Q4

REPORT INFORMATION
  Report Type: 
  Country: None (occurrence: None)
  Receive Date: 20061206
  Receipt Date: 20061129
  Transmission Date: 20070319
  Serious: Yes (Other)
  Sender: FDA-Public Use
  Company Number: GB-MERCK-0611GBR00175

PATIENT
  Age: 71 Year
  Sex: Female
  Weight: 94 kg

DRUGS (6)
  1. ZOCOR [Suspect]
     Indication: BLOOD CHOLESTEROL INCREASED
     Route: 048
     Dates: start: 20061012, end: 20061107
  2. ASPIRIN [Concomitant]
     Route: 065
  3. CANDESARTAN [Concomitant]
     Route: 048
  4. METFORMIN [Concomitant]
     Route: 065
  5. INSULIN ASPART, BIPHASIC ISOPHANE [INJECTION] [Concomitant]
     Route: 065
  6. ATENOLOL [Concomitant]
     Route: 065

REACTIONS (3)
  - DERMATITIS ALLERGIC [None]
  - RASH PRURITIC [None]
  - SWELLING [None]
